FAERS Safety Report 8179050-8 (Version None)
Quarter: 2012Q1

REPORT INFORMATION
  Report Type: 
  Country: None (occurrence: None)
  Receive Date: 20120302
  Receipt Date: 20120221
  Transmission Date: 20120608
  Serious: Yes (Hospitalization)
  Sender: FDA-Public Use
  Company Number: PL-ROCHE-1042675

PATIENT
  Age: 54 Year
  Sex: Female
  Weight: 65 kg

DRUGS (5)
  1. DURAGESIC-100 [Concomitant]
     Dates: start: 20111222
  2. DEPAKENE [Concomitant]
     Dates: start: 20111109
  3. FUROSEMIDE [Concomitant]
     Dates: start: 20111109
  4. DEXAMETHASONE [Concomitant]
     Dates: start: 20120119
  5. VEMURAFENIB [Suspect]
     Indication: METASTATIC MALIGNANT MELANOMA
     Route: 048
     Dates: start: 20120119, end: 20120220

REACTIONS (1)
  - NEUTROPENIA [None]
